FAERS Safety Report 5149727-7 (Version None)
Quarter: 2006Q4

REPORT INFORMATION
  Report Type: 
  Country: None (occurrence: None)
  Receive Date: 20061113
  Receipt Date: 20061107
  Transmission Date: 20070319
  Serious: Yes (Death)
  Sender: FDA-Public Use
  Company Number: 2006SE05987

PATIENT
  Age: 25611 Day
  Sex: Male

DRUGS (5)
  1. SEROQUEL [Suspect]
     Route: 048
     Dates: start: 20060501
  2. REMERON [Concomitant]
     Route: 048
  3. VENTOLIN [Concomitant]
     Route: 055
  4. ATROVENT [Concomitant]
     Route: 055
  5. PRIMICILLIN [Concomitant]
     Indication: BRONCHITIS
     Dates: start: 20061023

REACTIONS (4)
  - BRONCHITIS [None]
  - CARDIAC DEATH [None]
  - FALL [None]
  - PULMONARY EMBOLISM [None]
